FAERS Safety Report 21488052 (Version 1)
Quarter: 2022Q4

REPORT INFORMATION
  Report Type: Report from Study
  Country: US (occurrence: US)
  Receive Date: 20221020
  Receipt Date: 20221020
  Transmission Date: 20230113
  Serious: Yes (Death, Other)
  Sender: FDA-Public Use
  Company Number: US-BRISTOL-MYERS SQUIBB COMPANY-2022-124212

PATIENT
  Age: 37 Year
  Sex: Male
  Weight: 92.1 kg

DRUGS (2)
  1. NIVOLUMAB [Suspect]
     Active Substance: NIVOLUMAB
     Indication: Bladder adenocarcinoma stage unspecified
     Dosage: 3 MG/KG
     Route: 042
     Dates: start: 20220913
  2. IPILIMUMAB [Suspect]
     Active Substance: IPILIMUMAB
     Indication: Bladder adenocarcinoma stage unspecified
     Dosage: 1 MG/KG
     Route: 042
     Dates: start: 20220913

REACTIONS (1)
  - Death [Fatal]

NARRATIVE: CASE EVENT DATE: 20221016
